FAERS Safety Report 24997025 (Version 1)
Quarter: 2025Q1

REPORT INFORMATION
  Report Type: Report from Study
  Country: US (occurrence: US)
  Receive Date: 20250221
  Receipt Date: 20250221
  Transmission Date: 20250409
  Serious: Yes (Death)
  Sender: PFIZER
  Company Number: US-PFIZER INC-202400335403

PATIENT
  Age: 68 Year
  Sex: Male

DRUGS (29)
  1. INLYTA [Suspect]
     Active Substance: AXITINIB
     Dosage: TAKE 3 TABLETS (3MG) BY MOUTH EVERY 12 HOURS, SWALLOW TABLETS WHOLE WITH A FULL GLASS WATER
     Route: 048
     Dates: start: 20241130
  2. INLYTA [Suspect]
     Active Substance: AXITINIB
     Dosage: TAKE 4 TABLETS (4MG) BY MOUTH EVERY 12 HOURS
     Route: 048
  3. NALOXONE [Concomitant]
     Active Substance: NALOXONE
  4. EZETIMIBE [Concomitant]
     Active Substance: EZETIMIBE
  5. ATORVASTATIN [Concomitant]
     Active Substance: ATORVASTATIN
  6. METAMUCIL [Concomitant]
     Active Substance: PLANTAGO SEED
  7. HUMALOG [Concomitant]
     Active Substance: INSULIN LISPRO
  8. HYDROCODONE BITARTRATE AND ACETAMINOPHEN [Concomitant]
     Active Substance: ACETAMINOPHEN\HYDROCODONE BITARTRATE
  9. ASPIRIN [Concomitant]
     Active Substance: ASPIRIN
  10. ERGOCALCIFEROL [Concomitant]
     Active Substance: ERGOCALCIFEROL
  11. LANTUS [Concomitant]
     Active Substance: INSULIN GLARGINE
  12. OZEMPIC [Concomitant]
     Active Substance: SEMAGLUTIDE
  13. BRILINTA [Concomitant]
     Active Substance: TICAGRELOR
  14. LOSARTAN [Concomitant]
     Active Substance: LOSARTAN
  15. ALBUTEROL [Concomitant]
     Active Substance: ALBUTEROL
  16. SENNA LEAF [Concomitant]
     Active Substance: SENNA LEAF
  17. BENZONATATE [Concomitant]
     Active Substance: BENZONATATE
  18. PREGABALIN [Concomitant]
     Active Substance: PREGABALIN
  19. MIRALAX [Concomitant]
     Active Substance: POLYETHYLENE GLYCOL 3350
  20. BISACODYL [Concomitant]
     Active Substance: BISACODYL
  21. ONDANSETRON [Concomitant]
     Active Substance: ONDANSETRON
  22. DEBROX [CELECOXIB] [Concomitant]
  23. DEXAMETHASONE [Concomitant]
     Active Substance: DEXAMETHASONE
  24. APIDRA SOLOSTAR [Concomitant]
     Active Substance: INSULIN GLULISINE
  25. OXYCODONE [Concomitant]
     Active Substance: OXYCODONE
  26. MORPHINE SULFATE [Concomitant]
     Active Substance: MORPHINE SULFATE
  27. DULOXETINE [Concomitant]
     Active Substance: DULOXETINE
  28. FENTANYL [Concomitant]
     Active Substance: FENTANYL
  29. LOSARTAN POTASSIUM [Concomitant]
     Active Substance: LOSARTAN POTASSIUM

REACTIONS (4)
  - Death [Fatal]
  - Fatigue [Unknown]
  - Decreased appetite [Unknown]
  - Weight decreased [Unknown]
